FAERS Safety Report 8908297 (Version 2)
Quarter: 2013Q1

REPORT INFORMATION
  Report Type: Spontaneous
  Country: US (occurrence: US)
  Receive Date: 20121114
  Receipt Date: 20130123
  Transmission Date: 20140127
  Serious: Yes (Other)
  Sender: FDA-Public Use
  Company Number: PHEH2012US022316

PATIENT
  Sex: Male

DRUGS (9)
  1. TASIGNA [Suspect]
     Indication: GASTROINTESTINAL STROMAL TUMOUR
     Dosage: 200 MG
     Dates: start: 20120424
  2. REGELAN [Suspect]
     Indication: NAUSEA
     Dosage: 10 MG
  3. GLIMEPIRIDE [Concomitant]
  4. ACTOS [Concomitant]
  5. LISINOPRIL [Concomitant]
  6. JANUVIA [Concomitant]
     Indication: DIABETES MELLITUS
     Dosage: 1 DF, DAILY
  7. OXYCONTIN [Concomitant]
     Indication: PAIN
     Dosage: 40 MG
  8. OXYCODONE HYDROCHLORIDE [Concomitant]
     Indication: PAIN
     Dosage: 15 MG
  9. MIRALAX [Concomitant]
     Indication: CONSTIPATION
     Dosage: 7 G

REACTIONS (3)
  - Pharyngeal oedema [Recovered/Resolved]
  - Dyspnoea [Recovered/Resolved]
  - Back pain [Recovered/Resolved]
